FAERS Safety Report 9519763 (Version 1)
Quarter: 2013Q1

REPORT INFORMATION
  Report Type: Spontaneous
  Country: US (occurrence: None)
  Receive Date: 20130305
  Receipt Date: 20130305
  Transmission Date: 20140127
  Serious: Yes (Other)
  Sender: FDA-Public Use
  Company Number: 163-21880-12080758

PATIENT
  Age: 71 Year
  Sex: Male
  Weight: 90.72 kg

DRUGS (16)
  1. REVLIMID [Suspect]
     Indication: PLASMA CELL MYELOMA
     Route: 048
     Dates: start: 200910
  2. LETAIRIS (AMBRISENTAN) [Concomitant]
  3. ALDACTONE (SPIRONOLACTONE) [Concomitant]
  4. CYMBALTA (DULOXETINE HYDROCHLORIDE) [Concomitant]
  5. SINGULAIR (MONTELUKAST SODIUM) TABLET [Concomitant]
  6. LYRICA (PREGABALIN) [Concomitant]
  7. ASPIRIN (ACETYLSALICYLIC ACID) [Concomitant]
  8. LISINOPRIL (LISINOPRIL) [Concomitant]
  9. FLUCONAZOLE (FLUCONAZOLE) [Concomitant]
  10. VALTREX (VALACICLOVIR HYDROCHLORIDE) [Concomitant]
  11. OMEPRAZOLE (OMEPRAZOLE) [Concomitant]
  12. CALCIUM (CALCIUM) [Concomitant]
  13. LEVAQUIN (LEVOFLOXACIN) [Concomitant]
  14. FIBER TABS (POLYCARBOPHIL CALCIUM) [Concomitant]
  15. VESICARE (SOLIFENACIN SUCCINATE) [Concomitant]
  16. MULTIVITAMIN (MULTIVITAMINS) [Concomitant]

REACTIONS (2)
  - Blood pressure decreased [None]
  - Dyspnoea [None]
